FAERS Safety Report 16974883 (Version 3)
Quarter: 2020Q3

REPORT INFORMATION
  Report Type: Report from Study
  Country: US (occurrence: US)
  Receive Date: 20191030
  Receipt Date: 20200804
  Transmission Date: 20201102
  Serious: Yes (Other)
  Sender: FDA-Public Use
  Company Number: US-ACTELION-A-NJ2019-194787

PATIENT
  Age: 25 Year
  Sex: Female

DRUGS (8)
  1. SILDENAFIL. [Suspect]
     Active Substance: SILDENAFIL
     Indication: PRODUCT USED FOR UNKNOWN INDICATION
     Route: 065
  2. ALDACTONE [Concomitant]
     Active Substance: SPIRONOLACTONE
     Indication: OEDEMA
     Dosage: 25 MG, QD
     Route: 048
  3. OPSUMIT [Suspect]
     Active Substance: MACITENTAN
     Dosage: 10 MG
     Route: 048
     Dates: start: 201908
  4. LASIX [Concomitant]
     Active Substance: FUROSEMIDE
     Indication: OEDEMA
     Dosage: 40 MG, QOD
  5. METOPROLOL TARTRATE. [Concomitant]
     Active Substance: METOPROLOL TARTRATE
     Dosage: 25 MG, BID
  6. APIXABAN [Concomitant]
     Active Substance: APIXABAN
     Indication: ATRIAL TACHYCARDIA
     Dosage: 5 MG, BID
  7. OPSUMIT [Suspect]
     Active Substance: MACITENTAN
     Indication: PULMONARY ARTERIAL HYPERTENSION
     Dosage: 10 MG
     Route: 048
     Dates: start: 20191122
  8. RANOLAZINE. [Concomitant]
     Active Substance: RANOLAZINE
     Dosage: 500 MG, BID

REACTIONS (7)
  - Eye discharge [Unknown]
  - Product dose omission issue [Unknown]
  - Peripheral swelling [Unknown]
  - Arthropod bite [Unknown]
  - Blood bilirubin increased [Not Recovered/Not Resolved]
  - Ocular icterus [Unknown]
  - Headache [Unknown]

NARRATIVE: CASE EVENT DATE: 20190912
